FAERS Safety Report 8536085-0 (Version None)
Quarter: 2012Q3

REPORT INFORMATION
  Report Type: 
  Country: None (occurrence: None)
  Receive Date: 20120725
  Receipt Date: 20120723
  Transmission Date: 20120928
  Serious: No
  Sender: FDA-Public Use
  Company Number: US-TEVA-344557USA

PATIENT
  Sex: Female
  Weight: 54.48 kg

DRUGS (5)
  1. SIMVASTATIN [Concomitant]
     Indication: HYPERLIPIDAEMIA
     Dosage: 40 MILLIGRAM;
     Route: 048
  2. PROAIR HFA [Suspect]
     Indication: ASTHMA
     Dates: start: 20120618
  3. TRIAZOLAM [Concomitant]
     Indication: INSOMNIA
     Dosage: .25 MILLIGRAM;
     Route: 048
  4. PROPRANOLOL [Concomitant]
     Indication: HYPERTENSION
     Dosage: 60 MILLIGRAM;
     Route: 048
     Dates: end: 20120607
  5. TRIAMTERENE AND HYDROCHLOROTHIAZIDE [Concomitant]
     Indication: HYPERTENSION
     Dosage: 37.5/25 MG
     Route: 048

REACTIONS (2)
  - DRUG INEFFECTIVE [None]
  - WHEEZING [None]
